FAERS Safety Report 13615356 (Version 1)
Quarter: 2017Q2

REPORT INFORMATION
  Report Type: Spontaneous
  Country: FR (occurrence: FR)
  Receive Date: 20170606
  Receipt Date: 20170606
  Transmission Date: 20170830
  Serious: Yes (Death, Other)
  Sender: FDA-Public Use
  Company Number: FR-JNJFOC-20170600070

PATIENT

DRUGS (1)
  1. IBRUTINIB [Suspect]
     Active Substance: IBRUTINIB
     Indication: CHRONIC LYMPHOCYTIC LEUKAEMIA
     Dosage: 420 MG /PER OR 280 MG /DAY
     Route: 048
     Dates: start: 201312, end: 20141121

REACTIONS (11)
  - Death [Fatal]
  - Infection [Unknown]
  - Haemorrhage [Unknown]
  - Atrial fibrillation [Unknown]
  - Myalgia [Unknown]
  - Surgery [Unknown]
  - Cardiac disorder [Unknown]
  - Cardiotoxicity [Unknown]
  - Diarrhoea [Unknown]
  - Arthralgia [Unknown]
  - Haematotoxicity [Unknown]
